FAERS Safety Report 18036770 (Version 5)
Quarter: 2020Q3

REPORT INFORMATION
  Report Type: Spontaneous
  Country: CA (occurrence: CA)
  Receive Date: 20200717
  Receipt Date: 20200927
  Transmission Date: 20201103
  Serious: Yes (Other)
  Sender: FDA-Public Use
  Company Number: CA-CELLTRION INC.-2020CA024323

PATIENT

DRUGS (10)
  1. INFLECTRA [Suspect]
     Active Substance: INFLIXIMAB-DYYB
     Indication: CROHN^S DISEASE
     Dosage: 5 MG/KG AT 0, 2 AND 6 WEEKS, THEN EVERY 8 WEEKS
     Route: 042
     Dates: start: 20200213
  2. INFLECTRA [Suspect]
     Active Substance: INFLIXIMAB-DYYB
     Dosage: 10 MG/KG AT 0, 2 AND 6 WEEKS (REINDUCTION), THEN EVERY 8 WEEKS
     Route: 042
     Dates: start: 20200901
  3. AZATHIOPRINE. [Concomitant]
     Active Substance: AZATHIOPRINE
     Dosage: UNK, DAILY (DIE)
     Route: 065
  4. PREDNISONE. [Concomitant]
     Active Substance: PREDNISONE
     Dosage: 40 MG, DAILY (DIE)
     Route: 065
  5. INFLECTRA [Suspect]
     Active Substance: INFLIXIMAB-DYYB
     Dosage: 10 MG/KG AT 0, 2 AND 6 WEEKS (REINDUCTION), THEN EVERY 8 WEEKS
     Route: 042
     Dates: start: 20200720
  6. INFLECTRA [Suspect]
     Active Substance: INFLIXIMAB-DYYB
     Dosage: 10 MG/KG AT 0, 2 AND 6 WEEKS (REINDUCTION), THEN EVERY 8 WEEKS
     Route: 042
     Dates: start: 20200804
  7. INFLECTRA [Suspect]
     Active Substance: INFLIXIMAB-DYYB
     Dosage: 5 MG/KG AT 0, 2 AND 6 WEEKS, THEN EVERY 8 WEEKS
     Route: 042
     Dates: start: 20200529
  8. INFLECTRA [Suspect]
     Active Substance: INFLIXIMAB-DYYB
     Dosage: 5 MG/KG AT 0, 2 AND 6 WEEKS, THEN EVERY 8 WEEKS
     Route: 042
     Dates: start: 20200529
  9. INFLECTRA [Suspect]
     Active Substance: INFLIXIMAB-DYYB
     Dosage: 10 MG/KG AT 0, 2 AND 6 WEEKS (REINDUCTION), THEN EVERY 8 WEEKS
     Route: 042
     Dates: start: 20200720
  10. IRON [Concomitant]
     Active Substance: IRON
     Dosage: UNK
     Route: 048

REACTIONS (3)
  - Condition aggravated [Recovered/Resolved]
  - Drug level below therapeutic [Unknown]
  - Off label use [Unknown]

NARRATIVE: CASE EVENT DATE: 20200720
